FAERS Safety Report 11249358 (Version 1)
Quarter: 2015Q3

REPORT INFORMATION
  Report Type: Spontaneous
  Country: US (occurrence: US)
  Receive Date: 20150708
  Receipt Date: 20150708
  Transmission Date: 20151125
  Serious: Yes (Other)
  Sender: FDA-Public Use
  Company Number: US-ELI_LILLY_AND_COMPANY-US201004002300

PATIENT
  Age: 75 Year
  Sex: Male

DRUGS (2)
  1. PLATINUM COMPOUNDS [Concomitant]
     Active Substance: UNSPECIFIED INGREDIENT
  2. ALIMTA [Suspect]
     Active Substance: PEMETREXED DISODIUM
     Indication: MESOTHELIOMA

REACTIONS (2)
  - Malignant neoplasm progression [Unknown]
  - Drug hypersensitivity [Recovering/Resolving]
